FAERS Safety Report 7360779-6 (Version None)
Quarter: 2011Q1

REPORT INFORMATION
  Report Type: 
  Country: None (occurrence: None)
  Receive Date: 20110318
  Receipt Date: 20110315
  Transmission Date: 20110831
  Serious: Yes (Other)
  Sender: FDA-Public Use
  Company Number: VE-PFIZER INC-2011057754

PATIENT
  Age: 89 Year
  Sex: Male

DRUGS (1)
  1. ZOLOFT [Suspect]
     Indication: DEPRESSION
     Dosage: 50 MG, 1X/DAY
     Route: 048
     Dates: start: 20090101, end: 20110301

REACTIONS (4)
  - GASTRIC DISORDER [None]
  - HYPOTENSION [None]
  - ARRHYTHMIA [None]
  - MYOCARDIAL INFARCTION [None]
